FAERS Safety Report 9734396 (Version 2)
Quarter: 2013Q4

REPORT INFORMATION
  Report Type: Spontaneous
  Country: US (occurrence: US)
  Receive Date: 20131206
  Receipt Date: 20131206
  Transmission Date: 20140711
  Serious: Yes (Other)
  Sender: FDA-Public Use
  Company Number: US-BEH-2012033924

PATIENT
  Age: 2 Year
  Sex: Female
  Weight: 12.9 kg

DRUGS (23)
  1. PRIVIGEN [Suspect]
     Indication: MYOCLONUS
     Dosage: 5 GM VIAL;START SLOWLY,INCR RATE;DECR RATE PRN;CHECK VITALSQ15 MIN 1ST HR,THEN Q30 MIN,1HR THERAFTER
     Route: 042
     Dates: start: 20121105, end: 20121105
  2. PRIVIGEN [Suspect]
     Dosage: 10GM VIAL;START SLOWLY,INCR RATE;DECR RATE PRN;CHECK VITALSQ15 MIN 1ST HR,THEN Q30 MIN,1HR THERAFTER
     Route: 042
     Dates: start: 20121105, end: 20121105
  3. PRIVIGEN [Suspect]
     Dosage: 5 GM VIAL; 6 HOURS VIA CADD PRIZM PUMP
     Route: 042
  4. PRIVIGEN [Suspect]
     Dosage: 10 GM VIAL; 6 HOURS VIA CADD PRIZM PUMP
     Route: 042
  5. PRIVIGEN [Suspect]
     Dosage: OVER 6 HOURS
     Route: 042
  6. PRIVIGEN [Suspect]
     Dosage: OVER 6 HOURS
     Route: 042
  7. PRIVIGEN [Suspect]
     Dosage: OVER 7-10 HOURS
     Route: 042
     Dates: start: 20131127, end: 20131127
  8. PRIVIGEN [Suspect]
     Dosage: OVER 7-10 HOURS
     Route: 042
     Dates: start: 20131127, end: 20131127
  9. BENADRYL [Suspect]
     Route: 042
     Dates: start: 20131127, end: 20131127
  10. DEXAMETHASONE [Concomitant]
  11. DIPHENHYDRAMINE [Concomitant]
  12. HEPARIN [Concomitant]
  13. SALINE [Concomitant]
  14. EPI PEN JR [Concomitant]
  15. LMX [Concomitant]
     Indication: PREMEDICATION
     Route: 061
  16. ZANTAC [Concomitant]
  17. TRAZODONE [Concomitant]
  18. SULFAMETHOXAZOLE [Concomitant]
  19. AQUEOUS CHROMIUM [Concomitant]
  20. CALCIUM CARBONATE [Concomitant]
  21. ACTHAR HP [Concomitant]
     Dosage: 80 UNIT/ML VIAL
  22. SODIUM CHLORIDE [Concomitant]
  23. ACETAMINOPHEN [Concomitant]

REACTIONS (8)
  - Aneurysm [Unknown]
  - Irritability [Recovered/Resolved]
  - Abnormal behaviour [Recovered/Resolved]
  - Anger [Recovered/Resolved]
  - Abnormal behaviour [Recovered/Resolved]
  - Pyrexia [Unknown]
  - Nausea [Unknown]
  - Vomiting [Unknown]
